FAERS Safety Report 18068959 (Version 1)
Quarter: 2020Q3

REPORT INFORMATION
  Report Type: Spontaneous
  Country: CN (occurrence: CN)
  Receive Date: 20200724
  Receipt Date: 20200724
  Transmission Date: 20201103
  Serious: Yes (Other)
  Sender: FDA-Public Use
  Company Number: CN-BAXTER-2020BAX014969

PATIENT
  Age: 65 Year
  Sex: Male
  Weight: 61.5 kg

DRUGS (8)
  1. 5% GLUCOSE  INJECTION [Suspect]
     Active Substance: DEXTROSE
     Dosage: DOSE REINTRODUCED
     Route: 041
  2. LESHADING [Suspect]
     Active Substance: OXALIPLATIN
     Indication: CHEMOTHERAPY
     Route: 041
     Dates: start: 20200512, end: 20200513
  3. XELODA [Suspect]
     Active Substance: CAPECITABINE
     Dosage: TABLET; AFTER DINNER
     Route: 048
     Dates: start: 20200513, end: 20200527
  4. 5% GLUCOSE  INJECTION [Suspect]
     Active Substance: DEXTROSE
     Indication: MEDICATION DILUTION
     Route: 041
     Dates: start: 20200512, end: 20200513
  5. LESHADING [Suspect]
     Active Substance: OXALIPLATIN
     Dosage: DOSE REINTRODUCED
     Route: 041
  6. XELODA [Suspect]
     Active Substance: CAPECITABINE
     Dosage: DOSE REINTRODUCED
     Route: 048
  7. XELODA [Suspect]
     Active Substance: CAPECITABINE
     Dosage: DOSE REINTRODUCED
     Route: 048
  8. XELODA [Suspect]
     Active Substance: CAPECITABINE
     Indication: CHEMOTHERAPY
     Dosage: TABLET; AFTER BREAKFAST
     Route: 048
     Dates: start: 20200513, end: 20200527

REACTIONS (2)
  - Leukopenia [Recovering/Resolving]
  - Neutropenia [Recovering/Resolving]

NARRATIVE: CASE EVENT DATE: 20200602
